FAERS Safety Report 6235347-X (Version None)
Quarter: 2009Q2

REPORT INFORMATION
  Report Type: 
  Country: None (occurrence: None)
  Receive Date: 20090615
  Receipt Date: 20090529
  Transmission Date: 20091009
  Serious: Yes (Hospitalization)
  Sender: FDA-Public Use
  Company Number: 8046465

PATIENT
  Age: 58 Year
  Weight: 66 kg

DRUGS (9)
  1. CDP870 [Suspect]
     Indication: RHEUMATOID ARTHRITIS
     Dosage: SC
     Route: 058
     Dates: start: 20090205, end: 20090430
  2. CDP870 [Suspect]
     Indication: RHEUMATOID ARTHRITIS
     Dates: start: 20090527
  3. PLACEBO [Suspect]
     Indication: RHEUMATOID ARTHRITIS
     Dosage: SC
     Route: 058
     Dates: start: 20090205, end: 20090430
  4. PLACEBO [Suspect]
     Indication: RHEUMATOID ARTHRITIS
     Dates: start: 20090527
  5. PREDNISOLONE [Concomitant]
  6. SALAZOSULFAPYRIDINE [Concomitant]
  7. ROXATIDINE ACETATE HCL [Concomitant]
  8. LOXOPROFEN SODIUM [Concomitant]
  9. KETOPROFEN [Concomitant]

REACTIONS (1)
  - HERPES ZOSTER [None]
